FAERS Safety Report 11871830 (Version 3)
Quarter: 2016Q1

REPORT INFORMATION
  Report Type: Spontaneous
  Country: US (occurrence: US)
  Receive Date: 20151228
  Receipt Date: 20160225
  Transmission Date: 20160526
  Serious: No
  Sender: FDA-Public Use
  Company Number: US-GLAXOSMITHKLINE-US2015179020

PATIENT
  Age: 66 Year
  Sex: Female

DRUGS (15)
  1. FLUNISOLIDE. [Concomitant]
     Active Substance: FLUNISOLIDE
  2. LYRICA [Concomitant]
     Active Substance: PREGABALIN
  3. VERAPAMIL [Concomitant]
     Active Substance: VERAPAMIL HYDROCHLORIDE
  4. ATORVASTATIN [Concomitant]
     Active Substance: ATORVASTATIN
  5. LOSARTAN POTASSIUM. [Concomitant]
     Active Substance: LOSARTAN POTASSIUM
  6. LASTACAFT [Concomitant]
     Active Substance: ALCAFTADINE
  7. TRIAMT + HCTZ [Concomitant]
  8. ADVAIR DISKUS [Suspect]
     Active Substance: FLUTICASONE PROPIONATE\SALMETEROL XINAFOATE
     Indication: ASTHMA
     Dosage: 1 PUFF(S), BID, 250/50 UG
     Route: 055
     Dates: start: 201412, end: 20151211
  9. RANITIDINE [Concomitant]
     Active Substance: RANITIDINE\RANITIDINE HYDROCHLORIDE
  10. XOPENEX [Concomitant]
     Active Substance: LEVALBUTEROL HYDROCHLORIDE
  11. CITALOPRAM [Concomitant]
     Active Substance: CITALOPRAM HYDROBROMIDE
  12. LORATIDINE [Concomitant]
     Active Substance: LORATADINE
  13. ADVAIR DISKUS [Suspect]
     Active Substance: FLUTICASONE PROPIONATE\SALMETEROL XINAFOATE
     Dosage: 1 PUFF(S), BID, 500/50 UG
     Route: 055
     Dates: start: 20151211
  14. MONTELUKAST [Concomitant]
     Active Substance: MONTELUKAST SODIUM
  15. RESTASIS [Concomitant]
     Active Substance: CYCLOSPORINE

REACTIONS (6)
  - Stomatitis [Not Recovered/Not Resolved]
  - Dysphagia [Not Recovered/Not Resolved]
  - Odynophagia [Not Recovered/Not Resolved]
  - Oral pain [Not Recovered/Not Resolved]
  - Cough [Unknown]
  - Dry mouth [Recovered/Resolved]

NARRATIVE: CASE EVENT DATE: 201512
